FAERS Safety Report 7995488 (Version 4)
Quarter: 2012Q4

REPORT INFORMATION
  Report Type: Report from Study
  Country: IT (occurrence: IT)
  Receive Date: 20110617
  Receipt Date: 20121105
  Transmission Date: 20130627
  Serious: Yes (Hospitalization)
  Sender: FDA-Public Use
  Company Number: IT-JNJFOC-20110602169

PATIENT
  Age: 17 Year
  Sex: Male
  Weight: 45.9 kg

DRUGS (3)
  1. REMICADE [Suspect]
     Indication: CROHN^S DISEASE
     Route: 042
     Dates: start: 20100104
  2. REMICADE [Suspect]
     Indication: CROHN^S DISEASE
     Route: 042
     Dates: start: 20110303
  3. ANTIBIOTICS [Concomitant]
     Indication: CROHN^S DISEASE

REACTIONS (1)
  - Ileal stenosis [Recovered/Resolved with Sequelae]
